FAERS Safety Report 10183573 (Version 1)
Quarter: 2014Q2

REPORT INFORMATION
  Report Type: Spontaneous
  Country: GB (occurrence: GB)
  Receive Date: 20140520
  Receipt Date: 20140520
  Transmission Date: 20141212
  Serious: Yes (Hospitalization)
  Sender: FDA-Public Use
  Company Number: GB-TEVA-481371ISR

PATIENT
  Age: 48 Year
  Sex: Female

DRUGS (5)
  1. HALOPERIDOL [Suspect]
     Dosage: 2 MILLIGRAM DAILY;
  2. CLOZARIL [Suspect]
     Route: 048
     Dates: start: 20120302
  3. CLOZARIL [Suspect]
     Route: 048
  4. FLUOXETINE [Suspect]
     Dosage: 40 MILLIGRAM DAILY;
  5. TRIHEXYPHENIDYL [Suspect]
     Dosage: 3 MILLIGRAM DAILY;

REACTIONS (5)
  - Infective exacerbation of chronic obstructive airways disease [Unknown]
  - Differential white blood cell count abnormal [Unknown]
  - Leukocytosis [Unknown]
  - Neutrophil count increased [Unknown]
  - White blood cell count increased [Unknown]
